FAERS Safety Report 7528949-1 (Version None)
Quarter: 2011Q2

REPORT INFORMATION
  Report Type: 
  Country: None (occurrence: None)
  Receive Date: 20110607
  Receipt Date: 20110526
  Transmission Date: 20111010
  Serious: Yes (Other)
  Sender: FDA-Public Use
  Company Number: GB-JNJFOC-20110600727

PATIENT
  Age: 27 Year
  Sex: Female
  Weight: 65.5 kg

DRUGS (2)
  1. HYOSCINE [Concomitant]
     Indication: IRRITABLE BOWEL SYNDROME
     Route: 048
     Dates: start: 20110414, end: 20110421
  2. NICORETTE [Suspect]
     Indication: SMOKING CESSATION THERAPY
     Route: 048
     Dates: start: 20110503

REACTIONS (1)
  - EPISTAXIS [None]
